FAERS Safety Report 16943927 (Version 1)
Quarter: 2019Q4

REPORT INFORMATION
  Report Type: Spontaneous
  Country: GB (occurrence: GB)
  Receive Date: 20191022
  Receipt Date: 20191022
  Transmission Date: 20200122
  Serious: Yes (Death)
  Sender: FDA-Public Use
  Company Number: GB-TEVA-2019-GB-1124483

PATIENT
  Age: 70 Year
  Sex: Female
  Weight: 60 kg

DRUGS (3)
  1. TINZAPARIN [Concomitant]
     Active Substance: TINZAPARIN
     Indication: PULMONARY EMBOLISM
  2. METOCLOPRAMIDE HYDROCHLORIDE. [Suspect]
     Active Substance: METOCLOPRAMIDE HYDROCHLORIDE
     Indication: NAUSEA
     Dosage: 30 MG
     Route: 048
     Dates: start: 20190922, end: 20190923
  3. ATEZOLIZUMAB. [Suspect]
     Active Substance: ATEZOLIZUMAB
     Indication: LUNG NEOPLASM MALIGNANT
     Route: 042
     Dates: start: 20190915, end: 20190916

REACTIONS (4)
  - Neuroleptic malignant syndrome [Fatal]
  - Confusional state [Fatal]
  - Muscle rigidity [Fatal]
  - Hyperpyrexia [Fatal]

NARRATIVE: CASE EVENT DATE: 20190923
